FAERS Safety Report 24011742 (Version 1)
Quarter: 2024Q2

REPORT INFORMATION
  Report Type: Spontaneous
  Country: CN (occurrence: CN)
  Receive Date: 20240625
  Receipt Date: 20240625
  Transmission Date: 20240715
  Serious: Yes (Life-Threatening, Hospitalization, Other)
  Sender: FDA-Public Use
  Company Number: CN-Jiangsu Hansoh Pharmaceutical Co., Ltd-2158498

PATIENT
  Age: 62 Year
  Sex: Female
  Weight: 47 kg

DRUGS (2)
  1. GEMCITABINE HYDROCHLORIDE [Suspect]
     Active Substance: GEMCITABINE HYDROCHLORIDE
     Indication: Diffuse large B-cell lymphoma
     Route: 041
     Dates: start: 20240524, end: 20240524
  2. OXALIPLATIN [Suspect]
     Active Substance: OXALIPLATIN
     Dates: start: 20240524, end: 20240524

REACTIONS (7)
  - Myelosuppression [Recovering/Resolving]
  - Off label use [Unknown]
  - Vomiting [Unknown]
  - Decreased appetite [Recovering/Resolving]
  - Cough [Unknown]
  - Nausea [Unknown]
  - Productive cough [Unknown]

NARRATIVE: CASE EVENT DATE: 20240530
